FAERS Safety Report 7653597-2 (Version None)
Quarter: 2011Q3

REPORT INFORMATION
  Report Type: 
  Country: None (occurrence: None)
  Receive Date: 20110803
  Receipt Date: 20110719
  Transmission Date: 20111222
  Serious: Yes (Other)
  Sender: FDA-Public Use
  Company Number: GB-ARROW GEN-2011-11173

PATIENT
  Age: 61 Year
  Sex: Female
  Weight: 70 kg

DRUGS (6)
  1. HUMALOG [Concomitant]
     Indication: DIABETES MELLITUS
     Dosage: 3 ML, UNK
     Dates: start: 20100721
  2. MELOXICAM [Suspect]
     Indication: ARTHRITIS
     Dosage: 7.5 MG, BID
     Route: 048
     Dates: start: 20100719, end: 20110601
  3. LEVOTHYROXINE SODIUM [Concomitant]
     Indication: PRODUCT USED FOR UNKNOWN INDICATION
     Dosage: 75 UG, UNK
     Dates: start: 20100719
  4. CANDESARTAN CILEXETIL [Concomitant]
     Indication: PRODUCT USED FOR UNKNOWN INDICATION
     Dosage: 8 MG, UNK
     Route: 048
     Dates: start: 20110217
  5. SIMVASTATIN [Concomitant]
     Indication: PRODUCT USED FOR UNKNOWN INDICATION
     Dosage: 60 MBQ, UNK
     Route: 048
     Dates: start: 20110202
  6. TEGRETOL [Concomitant]
     Indication: PRODUCT USED FOR UNKNOWN INDICATION
     Dosage: 200 MG, BID
     Route: 048
     Dates: start: 20110202

REACTIONS (2)
  - DIABETES MELLITUS INADEQUATE CONTROL [None]
  - PRODUCT SUBSTITUTION ISSUE [None]
